FAERS Safety Report 5952906-X (Version None)
Quarter: 2008Q4

REPORT INFORMATION
  Report Type: 
  Country: None (occurrence: None)
  Receive Date: 20081114
  Receipt Date: 20081107
  Transmission Date: 20090506
  Serious: Yes (Other)
  Sender: FDA-Public Use
  Company Number: FR-NOVOPROD-280600

PATIENT

DRUGS (5)
  1. GLUCAGEN [Suspect]
     Indication: HYPOGLYCAEMIA
     Dosage: 1 MG, UNK
     Route: 030
     Dates: start: 20080921, end: 20080921
  2. GLUCAGEN [Suspect]
  3. NOVORAPID [Concomitant]
     Indication: DIABETES MELLITUS
     Dosage: 3 IU, BID
  4. NOVOLOG [Concomitant]
     Indication: DIABETES MELLITUS
     Dosage: 50 IU, QD
  5. LANTUS [Concomitant]
     Indication: TYPE 1 DIABETES MELLITUS
     Dosage: 15 IU, QD

REACTIONS (5)
  - ABDOMINAL PAIN [None]
  - HEADACHE [None]
  - HYPERHIDROSIS [None]
  - SOMNOLENCE [None]
  - VOMITING [None]
